FAERS Safety Report 17581694 (Version 2)
Quarter: 2020Q4

REPORT INFORMATION
  Report Type: Report from Study
  Country: DE (occurrence: DE)
  Receive Date: 20200325
  Receipt Date: 20201112
  Transmission Date: 20210113
  Serious: Yes (Other)
  Sender: FDA-Public Use
  Company Number: DE-TEVA-2020-DE-1209064

PATIENT
  Sex: Female
  Weight: 81.4 kg

DRUGS (3)
  1. FULVESTRANT. [Suspect]
     Active Substance: FULVESTRANT
     Indication: BREAST CANCER METASTATIC
     Dosage: 500 MILLIGRAM DAILY; 500 MG, QD (MONTHLY)
     Route: 030
     Dates: start: 20190826
  2. KISQALI [Suspect]
     Active Substance: RIBOCICLIB
     Dosage: 600 MILLIGRAM DAILY; 600 MG, QD (SCHEME: 21 DAYS INTAKE, 7DAYS PAUSE)
     Route: 048
     Dates: start: 20190812, end: 20200203
  3. KISQALI [Suspect]
     Active Substance: RIBOCICLIB
     Indication: BREAST CANCER METASTATIC
     Dosage: 600 MILLIGRAM DAILY; 600 MG, QD (SCHEME: 21 DAYS INTAKE, 7DAYS PAUSE)
     Route: 048
     Dates: start: 20200211

REACTIONS (1)
  - Neutropenia [Recovered/Resolved]

NARRATIVE: CASE EVENT DATE: 20200203
